FAERS Safety Report 4353062-4 (Version None)
Quarter: 2004Q2

REPORT INFORMATION
  Report Type: 
  Country: None (occurrence: None)
  Receive Date: 20040429
  Receipt Date: 20040423
  Transmission Date: 20050107
  Serious: Yes (Life-Threatening)
  Sender: FDA-Public Use
  Company Number: GB-JNJFOC-20040205101

PATIENT
  Age: 78 Year
  Sex: Female

DRUGS (3)
  1. RISPERDAL CONSTA [Suspect]
     Indication: SCHIZOPHRENIA
     Dosage: 25 MG, 1 IN 2 WEEK, INTRA-MUSCULAR
     Route: 030
     Dates: start: 20040204
  2. RISPERDAL CONSTA [Suspect]
     Indication: SCHIZOPHRENIA, PARANOID TYPE
     Dosage: 25 MG, 1 IN 2 WEEK, INTRA-MUSCULAR
     Route: 030
     Dates: start: 20040204
  3. NITARAZEPAM (NITRAZEPAM) [Concomitant]

REACTIONS (1)
  - DEEP VEIN THROMBOSIS [None]
